FAERS Safety Report 13967750 (Version 2)
Quarter: 2021Q3

REPORT INFORMATION
  Report Type: Report from Study
  Country: US (occurrence: US)
  Receive Date: 20170914
  Receipt Date: 20210729
  Transmission Date: 20211014
  Serious: No
  Sender: FDA-Public Use
  Company Number: US-BAYER-2017-169401

PATIENT
  Age: 61 Year
  Sex: Female

DRUGS (4)
  1. GADOVIST [Suspect]
     Active Substance: GADOBUTROL
     Dosage: UNK
  2. DOTAREM [Suspect]
     Active Substance: GADOTERATE MEGLUMINE
  3. MULTIHANCE [Suspect]
     Active Substance: GADOBENATE DIMEGLUMINE
  4. OPTIMARK [Suspect]
     Active Substance: GADOVERSETAMIDE

REACTIONS (29)
  - Skin lesion [Not Recovered/Not Resolved]
  - Dysphagia [Not Recovered/Not Resolved]
  - Formication [Not Recovered/Not Resolved]
  - Thyroid mass [Not Recovered/Not Resolved]
  - Muscle spasms [Not Recovered/Not Resolved]
  - Gingival bleeding [Not Recovered/Not Resolved]
  - Skin hypertrophy [Not Recovered/Not Resolved]
  - Muscle atrophy [Not Recovered/Not Resolved]
  - Myalgia [Not Recovered/Not Resolved]
  - Toothache [Not Recovered/Not Resolved]
  - Joint contracture [None]
  - Balance disorder [Not Recovered/Not Resolved]
  - Musculoskeletal chest pain [Not Recovered/Not Resolved]
  - Dyspnoea [None]
  - Cognitive disorder [Not Recovered/Not Resolved]
  - Nontherapeutic agent urine positive [None]
  - Pain [Not Recovered/Not Resolved]
  - Bone pain [Not Recovered/Not Resolved]
  - Arthralgia [Not Recovered/Not Resolved]
  - Hypoaesthesia [Not Recovered/Not Resolved]
  - Skin tightness [Not Recovered/Not Resolved]
  - Skin burning sensation [Not Recovered/Not Resolved]
  - Weight decreased [Not Recovered/Not Resolved]
  - Skin exfoliation [Not Recovered/Not Resolved]
  - Pruritus [Not Recovered/Not Resolved]
  - Lacrimation increased [Not Recovered/Not Resolved]
  - Alopecia [Not Recovered/Not Resolved]
  - Pulmonary granuloma [Not Recovered/Not Resolved]
  - Solar lentigo [Not Recovered/Not Resolved]
